FAERS Safety Report 19932545 (Version 1)
Quarter: 2021Q4

REPORT INFORMATION
  Report Type: Spontaneous
  Country: CA (occurrence: CA)
  Receive Date: 20211008
  Receipt Date: 20211008
  Transmission Date: 20220303
  Serious: Yes (Life-Threatening, Hospitalization)
  Sender: FDA-Public Use
  Company Number: CA-TEVA-2021-CA-1961770

PATIENT
  Age: 53 Year
  Sex: Male

DRUGS (1)
  1. CAPECITABINE [Suspect]
     Active Substance: CAPECITABINE
     Indication: Rectal cancer
     Route: 065

REACTIONS (5)
  - Brain injury [Recovered/Resolved with Sequelae]
  - Cardiac arrest [Recovered/Resolved with Sequelae]
  - Electrocardiogram QT prolonged [Recovered/Resolved with Sequelae]
  - Pulseless electrical activity [Recovered/Resolved with Sequelae]
  - Torsade de pointes [Recovered/Resolved with Sequelae]
